FAERS Safety Report 7892352-5 (Version None)
Quarter: 2011Q4

REPORT INFORMATION
  Report Type: 
  Country: None (occurrence: None)
  Receive Date: 20111103
  Receipt Date: 20111103
  Transmission Date: 20120403
  Serious: No
  Sender: FDA-Public Use
  Company Number: None

PATIENT
  Age: 74 Year
  Sex: Male
  Weight: 76 kg

DRUGS (1)
  1. ACETAMINOPHEN AND OXYCODONE HCL [Suspect]
     Dosage: 1 TAB OTHER PO
     Route: 048
     Dates: start: 20110331, end: 20110402

REACTIONS (2)
  - HYPOTENSION [None]
  - LETHARGY [None]
